FAERS Safety Report 4518584-1 (Version None)
Quarter: 2004Q4

REPORT INFORMATION
  Report Type: 
  Country: None (occurrence: None)
  Receive Date: 20041201
  Receipt Date: 20041116
  Transmission Date: 20050328
  Serious: Yes (Death, Hospitalization)
  Sender: FDA-Public Use
  Company Number: 207869

PATIENT
  Age: 48 Year
  Sex: Female
  Weight: 90.7194 kg

DRUGS (2)
  1. AVONEX [Suspect]
     Indication: MULTIPLE SCLEROSIS
     Dosage: IM
     Route: 030
     Dates: start: 20020101, end: 20040101
  2. MEDICINE FOR DIABETES [Concomitant]

REACTIONS (3)
  - DIFFICULTY IN WALKING [None]
  - DYSPNOEA [None]
  - MYOCARDIAL INFARCTION [None]
